FAERS Safety Report 6109013-5 (Version None)
Quarter: 2009Q1

REPORT INFORMATION
  Report Type: 
  Country: None (occurrence: None)
  Receive Date: 20090310
  Receipt Date: 20090225
  Transmission Date: 20090719
  Serious: Yes (Hospitalization, Other)
  Sender: FDA-Public Use
  Company Number: US-ELI_LILLY_AND_COMPANY-US200902007470

PATIENT

DRUGS (4)
  1. FORTEO [Suspect]
     Indication: BONE DISORDER
  2. ATENOLOL [Concomitant]
  3. PREDNISONE [Concomitant]
  4. ANTIBIOTICS [Concomitant]
     Indication: PSEUDOMONAS INFECTION

REACTIONS (2)
  - DEVICE FAILURE [None]
  - HIP ARTHROPLASTY [None]
